FAERS Safety Report 12044543 (Version 1)
Quarter: 2016Q1

REPORT INFORMATION
  Report Type: Report from Study
  Country: US (occurrence: US)
  Receive Date: 20160208
  Receipt Date: 20160208
  Transmission Date: 20160526
  Serious: No
  Sender: FDA-Public Use
  Company Number: US-ABBVIE-15P-163-1345645-00

PATIENT
  Age: 43 Year
  Sex: Female

DRUGS (2)
  1. HUMIRA [Suspect]
     Active Substance: ADALIMUMAB
     Indication: PSORIASIS
     Route: 065
     Dates: start: 20140829, end: 20150113
  2. KEFLEX [Suspect]
     Active Substance: CEPHALEXIN
     Indication: DYSPNOEA
     Route: 065
     Dates: start: 20150126, end: 20150205

REACTIONS (8)
  - Dyspnoea [Unknown]
  - Pyrexia [Recovered/Resolved]
  - Diarrhoea [Recovered/Resolved]
  - Respiratory disorder [Unknown]
  - Gastric disorder [Recovered/Resolved]
  - Papule [Recovering/Resolving]
  - Malaise [Unknown]
  - Pruritus generalised [Recovering/Resolving]

NARRATIVE: CASE EVENT DATE: 201501
